FAERS Safety Report 21353754 (Version 2)
Quarter: 2022Q3

REPORT INFORMATION
  Report Type: Spontaneous
  Country: BR (occurrence: BR)
  Receive Date: 20220920
  Receipt Date: 20220927
  Transmission Date: 20221027
  Serious: No
  Sender: FDA-Public Use
  Company Number: BR-009507513-2209BRA006311

PATIENT
  Age: 77 Year
  Sex: Female

DRUGS (1)
  1. JANUVIA [Suspect]
     Active Substance: SITAGLIPTIN PHOSPHATE
     Dosage: 25 MG (1 TABLET) ONCE A DAY (QD)
     Route: 048

REACTIONS (4)
  - Arthralgia [Unknown]
  - Blood pressure increased [Unknown]
  - Inability to afford medication [Unknown]
  - Intentional product misuse [Unknown]
